FAERS Safety Report 16643734 (Version 1)
Quarter: 2019Q3

REPORT INFORMATION
  Report Type: Spontaneous
  Country: US (occurrence: US)
  Receive Date: 20190729
  Receipt Date: 20190729
  Transmission Date: 20191004
  Serious: Yes (Other)
  Sender: FDA-Public Use
  Company Number: US-PRINSTON PHARMACEUTICAL INC.-2018PRN01565

PATIENT
  Age: 39 Year
  Sex: Male

DRUGS (1)
  1. CLONAZEPAM. [Suspect]
     Active Substance: CLONAZEPAM
     Dosage: UNK

REACTIONS (6)
  - Tinnitus [Unknown]
  - Drug ineffective [Unknown]
  - Headache [Unknown]
  - Suicidal ideation [Unknown]
  - Palpitations [Unknown]
  - Anxiety [Unknown]
